FAERS Safety Report 20607770 (Version 14)
Quarter: 2022Q3

REPORT INFORMATION
  Report Type: Report from Study
  Country: CN (occurrence: None)
  Receive Date: 20220317
  Receipt Date: 20220802
  Transmission Date: 20221027
  Serious: Yes (Death, Life-Threatening, Hospitalization)
  Sender: FDA-Public Use
  Company Number: CN-ROCHE-2903829

PATIENT
  Age: 74 Year
  Sex: Male
  Weight: 53 kg

DRUGS (122)
  1. TIRAGOLUMAB [Suspect]
     Active Substance: TIRAGOLUMAB
     Indication: Oesophageal squamous cell carcinoma metastatic
     Route: 042
     Dates: start: 20210623
  2. ATEZOLIZUMAB [Suspect]
     Active Substance: ATEZOLIZUMAB
     Indication: Oesophageal squamous cell carcinoma metastatic
     Dosage: ON 13/AUG/2021 HE TOOK MOST RECENT DOSE PRIOR TO SERIOUS ADVERSE EVENT
     Route: 041
     Dates: start: 20210723
  3. PACLITAXEL [Suspect]
     Active Substance: PACLITAXEL
     Indication: Oesophageal squamous cell carcinoma metastatic
     Dosage: ON 13/AUG/2021 HE TOOK MOST RECENT DOSE PRIOR TO SERIOUS ADVERSE EVENT (210 MG).
     Route: 042
     Dates: start: 20210723
  4. CISPLATIN [Suspect]
     Active Substance: CISPLATIN
     Indication: Oesophageal squamous cell carcinoma metastatic
     Dosage: ON 13/AUG/2021 HE TOOK MOST RECENT DOSE PRIOR TO SERIOUS ADVERSE EVENT (90 MG).
     Route: 042
     Dates: start: 20210723
  5. DEXAMETHASONE SODIUM PHOSPHATE [Concomitant]
     Active Substance: DEXAMETHASONE SODIUM PHOSPHATE
     Route: 042
     Dates: start: 20210813, end: 20210813
  6. DIPHENHYDRAMINE HYDROCHLORIDE [Concomitant]
     Active Substance: DIPHENHYDRAMINE HYDROCHLORIDE
     Dates: start: 20210813, end: 20210813
  7. GRANISETRON HYDROCHLORIDE [Concomitant]
     Active Substance: GRANISETRON HYDROCHLORIDE
     Dates: start: 20210813, end: 20210813
  8. LIDOCAINE HYDROCHLORIDE [Concomitant]
     Active Substance: LIDOCAINE HYDROCHLORIDE
     Dosage: FIBEROPTIC BRONCHOSCOPY FOR LOCAL?ANESTHESIA
     Dates: start: 20210813, end: 20210813
  9. LIDOCAINE HYDROCHLORIDE [Concomitant]
     Active Substance: LIDOCAINE HYDROCHLORIDE
     Dates: start: 20210910, end: 20210910
  10. HEPARIN SODIUM [Concomitant]
     Active Substance: HEPARIN SODIUM
     Dates: start: 20210813, end: 20210813
  11. COMPOUND MEGLUMINE DIATRIZOATE [Concomitant]
     Dates: start: 20210813, end: 20210813
  12. IBUPROFEN [Concomitant]
     Active Substance: IBUPROFEN
     Dates: start: 20210815, end: 20210815
  13. MONTMORILLONITE [Concomitant]
     Active Substance: MONTMORILLONITE
     Dates: start: 20210813, end: 20210814
  14. FAMOTIDINE;SODIUM CHLORIDE [Concomitant]
     Dates: start: 20210831, end: 20210910
  15. OMEPRAZOLE SODIUM [Concomitant]
     Active Substance: OMEPRAZOLE SODIUM
     Dates: start: 20210910, end: 20210914
  16. OMEPRAZOLE SODIUM [Concomitant]
     Active Substance: OMEPRAZOLE SODIUM
     Dates: start: 20211001, end: 20211015
  17. OMEPRAZOLE SODIUM [Concomitant]
     Active Substance: OMEPRAZOLE SODIUM
     Dates: start: 20211026, end: 20211110
  18. PANTOPRAZOLE SODIUM [Concomitant]
     Active Substance: PANTOPRAZOLE SODIUM
     Dates: start: 20210914, end: 20210929
  19. PANTOPRAZOLE SODIUM [Concomitant]
     Active Substance: PANTOPRAZOLE SODIUM
     Dates: start: 20211015, end: 20211024
  20. PANTOPRAZOLE SODIUM [Concomitant]
     Active Substance: PANTOPRAZOLE SODIUM
     Route: 048
     Dates: start: 20211110, end: 20211129
  21. LEUCOGEN [Concomitant]
     Active Substance: LEUCOGEN
     Dates: start: 20210726, end: 20210811
  22. LEUCOGEN [Concomitant]
     Active Substance: LEUCOGEN
     Dates: start: 20211005, end: 20211022
  23. FOSAPREPITANT DIMEGLUMINE [Concomitant]
     Active Substance: FOSAPREPITANT DIMEGLUMINE
     Dosage: PREVENT VOMITING
     Dates: start: 20210813, end: 20210813
  24. METOCLOPRAMIDE HYDROCHLORIDE [Concomitant]
     Active Substance: METOCLOPRAMIDE HYDROCHLORIDE
     Dosage: PREVENT VOMITING
     Dates: start: 20210813, end: 20210816
  25. AMBROXOL HYDROCHLORIDE [Concomitant]
     Active Substance: AMBROXOL HYDROCHLORIDE
     Dosage: RELIEVING COUGH AND RESOLVING PHLEGM
     Route: 042
     Dates: start: 20210831, end: 20210914
  26. AMBROXOL HYDROCHLORIDE [Concomitant]
     Active Substance: AMBROXOL HYDROCHLORIDE
     Dates: start: 20210930, end: 20211015
  27. AMBROXOL HYDROCHLORIDE [Concomitant]
     Active Substance: AMBROXOL HYDROCHLORIDE
     Route: 048
     Dates: start: 20211110, end: 20211129
  28. AMBROXOL HYDROCHLORIDE [Concomitant]
     Active Substance: AMBROXOL HYDROCHLORIDE
     Route: 042
     Dates: start: 20211024, end: 20211110
  29. AMBROXOL HYDROCHLORIDE [Concomitant]
     Active Substance: AMBROXOL HYDROCHLORIDE
     Route: 042
     Dates: start: 20211130, end: 20211216
  30. AMBROXOL HYDROCHLORIDE [Concomitant]
     Active Substance: AMBROXOL HYDROCHLORIDE
     Route: 042
     Dates: start: 20211230, end: 20220120
  31. AMBROXOL HYDROCHLORIDE [Concomitant]
     Active Substance: AMBROXOL HYDROCHLORIDE
     Route: 042
     Dates: start: 20220209, end: 20220224
  32. AMBROXOL HYDROCHLORIDE [Concomitant]
     Active Substance: AMBROXOL HYDROCHLORIDE
     Route: 042
     Dates: start: 20220321, end: 20220406
  33. AMBROXOL HYDROCHLORIDE [Concomitant]
     Active Substance: AMBROXOL HYDROCHLORIDE
     Route: 042
     Dates: start: 20220427, end: 20220517
  34. CEFOPERAZONE SODIUM\SULBACTAM SODIUM [Concomitant]
     Active Substance: CEFOPERAZONE SODIUM\SULBACTAM SODIUM
     Dosage: ANTI-INFECTION
     Dates: start: 20220107, end: 20220120
  35. CEFOPERAZONE SODIUM\SULBACTAM SODIUM [Concomitant]
     Active Substance: CEFOPERAZONE SODIUM\SULBACTAM SODIUM
     Route: 042
     Dates: start: 20220209, end: 20220210
  36. CEFOPERAZONE SODIUM\SULBACTAM SODIUM [Concomitant]
     Active Substance: CEFOPERAZONE SODIUM\SULBACTAM SODIUM
     Route: 042
     Dates: start: 20220214, end: 20220224
  37. EBASTINE [Concomitant]
     Active Substance: EBASTINE
     Dosage: ANTIHISTAMINE RELIEVES ITCHING
     Dates: start: 20210903, end: 20210906
  38. COMPOUND FLUMETASONE [Concomitant]
     Dosage: RELIEVE ITCHING
     Dates: start: 20210903, end: 20210906
  39. MEGESTROL ACETATE [Concomitant]
     Active Substance: MEGESTROL ACETATE
     Dosage: IMPROVE APPETITE
     Dates: start: 20210903, end: 20210915
  40. MEGESTROL ACETATE [Concomitant]
     Active Substance: MEGESTROL ACETATE
     Dates: start: 20210930, end: 20211004
  41. BRICANYL [Concomitant]
     Active Substance: TERBUTALINE SULFATE
     Dosage: LOCAL SPUTUM DILUTION TO PROMOTE?SPUTUM EXCRETION
     Dates: start: 20210904, end: 20210907
  42. BRICANYL [Concomitant]
     Active Substance: TERBUTALINE SULFATE
     Dosage: LOCAL SPUTUM DILUTION TO PROMOTE?SPUTUM EXCRETION
     Dates: start: 20211025, end: 20211110
  43. POTASSIUM CHLORIDE [Concomitant]
     Active Substance: POTASSIUM CHLORIDE
     Dates: start: 20210930, end: 20210930
  44. POTASSIUM CHLORIDE [Concomitant]
     Active Substance: POTASSIUM CHLORIDE
     Dates: start: 20211001, end: 20211001
  45. POTASSIUM CHLORIDE [Concomitant]
     Active Substance: POTASSIUM CHLORIDE
     Route: 048
     Dates: start: 20211006, end: 20211008
  46. POTASSIUM CHLORIDE [Concomitant]
     Active Substance: POTASSIUM CHLORIDE
     Route: 048
     Dates: start: 20211030, end: 20211101
  47. POTASSIUM CHLORIDE [Concomitant]
     Active Substance: POTASSIUM CHLORIDE
     Route: 048
     Dates: start: 20211108, end: 20211110
  48. POTASSIUM CHLORIDE [Concomitant]
     Active Substance: POTASSIUM CHLORIDE
     Dates: start: 20211110, end: 20211129
  49. POTASSIUM CHLORIDE [Concomitant]
     Active Substance: POTASSIUM CHLORIDE
     Dates: start: 20210813, end: 20210816
  50. VITAMIN C [Concomitant]
     Active Substance: ASCORBIC ACID
     Dates: start: 20210930, end: 20210930
  51. VITAMIN C [Concomitant]
     Active Substance: ASCORBIC ACID
     Dates: start: 20211001, end: 20211001
  52. ENOXAPARIN SODIUM [Concomitant]
     Active Substance: ENOXAPARIN SODIUM
     Dates: start: 20211001, end: 20211005
  53. SODIUM BICARBONATE [Concomitant]
     Active Substance: SODIUM BICARBONATE
     Dates: start: 20211001, end: 20211015
  54. NYSTATIN [Concomitant]
     Active Substance: NYSTATIN
     Dates: start: 20211002, end: 20211015
  55. NYSTATIN [Concomitant]
     Active Substance: NYSTATIN
     Dates: start: 20211029, end: 20211120
  56. CALCIUM CARBONATE\CHOLECALCIFEROL [Concomitant]
     Active Substance: CALCIUM CARBONATE\CHOLECALCIFEROL
     Dates: start: 20210831, end: 20210930
  57. CALCIUM CARBONATE\CHOLECALCIFEROL [Concomitant]
     Active Substance: CALCIUM CARBONATE\CHOLECALCIFEROL
     Dates: start: 20211001, end: 20211129
  58. COMPOUND FERROUS SULFATE AND FOLIC ACID [Concomitant]
     Dates: start: 20211005, end: 20211008
  59. COMPOUND FERROUS SULFATE AND FOLIC ACID [Concomitant]
     Dates: start: 20211009, end: 20211012
  60. COMPOUND FERROUS SULFATE AND FOLIC ACID [Concomitant]
     Dates: start: 20211013, end: 20211129
  61. ALBUMIN HUMAN [Concomitant]
     Active Substance: ALBUMIN HUMAN
     Indication: Blood albumin increased
     Dates: start: 20211006, end: 20211008
  62. ALBUMIN HUMAN [Concomitant]
     Active Substance: ALBUMIN HUMAN
     Dates: start: 20211030, end: 20211030
  63. ALBUMIN HUMAN [Concomitant]
     Active Substance: ALBUMIN HUMAN
     Dates: start: 20211101, end: 20211101
  64. DOXOFYLLINE [Concomitant]
     Active Substance: DOXOFYLLINE
     Route: 042
     Dates: start: 20211024, end: 20211110
  65. DOXOFYLLINE [Concomitant]
     Active Substance: DOXOFYLLINE
     Route: 042
     Dates: start: 20211130, end: 20211130
  66. DOXOFYLLINE [Concomitant]
     Active Substance: DOXOFYLLINE
     Route: 042
     Dates: start: 20220209, end: 20220224
  67. DOXOFYLLINE [Concomitant]
     Active Substance: DOXOFYLLINE
     Route: 042
     Dates: start: 20220321, end: 20220406
  68. DOXOFYLLINE [Concomitant]
     Active Substance: DOXOFYLLINE
     Route: 042
     Dates: start: 20220427, end: 20220517
  69. GLYCERIN\LECITHIN\MEDIUM-CHAIN TRIGLYCERIDES\SOYBEAN OIL [Concomitant]
     Active Substance: GLYCERIN\LECITHIN\MEDIUM-CHAIN TRIGLYCERIDES\SOYBEAN OIL
     Route: 042
     Dates: start: 20211101, end: 20211110
  70. GLYCERIN\LECITHIN\MEDIUM-CHAIN TRIGLYCERIDES\SOYBEAN OIL [Concomitant]
     Active Substance: GLYCERIN\LECITHIN\MEDIUM-CHAIN TRIGLYCERIDES\SOYBEAN OIL
     Route: 042
     Dates: start: 20211025, end: 20211025
  71. BRICANYL [Concomitant]
     Active Substance: TERBUTALINE SULFATE
     Route: 055
     Dates: start: 20211025, end: 20211110
  72. METHYLPREDNISOLONE SODIUM SUCCINATE [Concomitant]
     Active Substance: METHYLPREDNISOLONE SODIUM SUCCINATE
     Indication: Pneumonia
     Route: 042
     Dates: start: 20211109, end: 20211110
  73. METHYLPREDNISOLONE SODIUM SUCCINATE [Concomitant]
     Active Substance: METHYLPREDNISOLONE SODIUM SUCCINATE
     Route: 045
     Dates: start: 20211026, end: 20211108
  74. METHYLPREDNISOLONE SODIUM SUCCINATE [Concomitant]
     Active Substance: METHYLPREDNISOLONE SODIUM SUCCINATE
     Route: 042
     Dates: start: 20211001, end: 20211004
  75. METHYLPREDNISOLONE SODIUM SUCCINATE [Concomitant]
     Active Substance: METHYLPREDNISOLONE SODIUM SUCCINATE
     Route: 042
     Dates: start: 20211005, end: 20211010
  76. METHYLPREDNISOLONE SODIUM SUCCINATE [Concomitant]
     Active Substance: METHYLPREDNISOLONE SODIUM SUCCINATE
     Route: 042
     Dates: start: 20210910, end: 20210914
  77. METHYLPREDNISOLONE SODIUM SUCCINATE [Concomitant]
     Active Substance: METHYLPREDNISOLONE SODIUM SUCCINATE
     Dates: start: 20211011, end: 20211015
  78. METHYLPREDNISOLONE SODIUM SUCCINATE [Concomitant]
     Active Substance: METHYLPREDNISOLONE SODIUM SUCCINATE
     Route: 042
     Dates: start: 20220403, end: 20220403
  79. METHYLPREDNISOLONE SODIUM SUCCINATE [Concomitant]
     Active Substance: METHYLPREDNISOLONE SODIUM SUCCINATE
     Route: 042
     Dates: start: 20220403, end: 20220403
  80. METHYLPREDNISOLONE SODIUM SUCCINATE [Concomitant]
     Active Substance: METHYLPREDNISOLONE SODIUM SUCCINATE
     Route: 042
     Dates: start: 20220427, end: 20220505
  81. PULMICORT TURBUHALER [Concomitant]
     Active Substance: BUDESONIDE
     Route: 055
     Dates: start: 20211025, end: 20211110
  82. LACTULOSE [Concomitant]
     Active Substance: LACTULOSE
     Indication: Constipation
     Route: 048
     Dates: start: 20211031, end: 20211103
  83. ALFACALCIDOL [Concomitant]
     Active Substance: ALFACALCIDOL
     Dates: start: 20211105, end: 20211110
  84. ALFACALCIDOL [Concomitant]
     Active Substance: ALFACALCIDOL
     Dates: start: 20211111, end: 20211129
  85. DEXTROSE [Concomitant]
     Active Substance: DEXTROSE
     Dates: start: 20210813, end: 20210816
  86. DEXTROSE [Concomitant]
     Active Substance: DEXTROSE
     Route: 042
     Dates: start: 20210929, end: 20211016
  87. DEXTROSE [Concomitant]
     Active Substance: DEXTROSE
     Dates: start: 20211016
  88. SODIUM CHLORIDE [Concomitant]
     Active Substance: SODIUM CHLORIDE
     Dates: start: 20210815, end: 20210815
  89. PREDNISONE ACETATE [Concomitant]
     Active Substance: PREDNISONE ACETATE
     Route: 048
     Dates: start: 20211130, end: 20211130
  90. PREDNISONE ACETATE [Concomitant]
     Active Substance: PREDNISONE ACETATE
     Route: 001
     Dates: start: 20211211, end: 20211214
  91. PREDNISONE ACETATE [Concomitant]
     Active Substance: PREDNISONE ACETATE
     Route: 048
     Dates: start: 20211215, end: 20211216
  92. PREDNISONE ACETATE [Concomitant]
     Active Substance: PREDNISONE ACETATE
     Route: 048
     Dates: start: 20211201, end: 20211205
  93. PREDNISONE ACETATE [Concomitant]
     Active Substance: PREDNISONE ACETATE
     Route: 048
     Dates: start: 20211206, end: 20211209
  94. PREDNISONE ACETATE [Concomitant]
     Active Substance: PREDNISONE ACETATE
     Route: 048
     Dates: start: 20211210, end: 20211213
  95. PREDNISONE ACETATE [Concomitant]
     Active Substance: PREDNISONE ACETATE
     Route: 048
     Dates: start: 20211214, end: 20211216
  96. ACETYLCYSTEINE [Concomitant]
     Active Substance: ACETYLCYSTEINE
     Route: 055
     Dates: start: 20211130, end: 20211216
  97. ACETYLCYSTEINE [Concomitant]
     Active Substance: ACETYLCYSTEINE
     Route: 055
     Dates: start: 20220321, end: 20220406
  98. ACETYLCYSTEINE [Concomitant]
     Active Substance: ACETYLCYSTEINE
     Route: 055
     Dates: start: 20220427, end: 20220517
  99. LINEZOLID [Concomitant]
     Active Substance: LINEZOLID
     Route: 048
     Dates: start: 20211203, end: 20211216
  100. SULFAMETHOXAZOLE [Concomitant]
     Active Substance: SULFAMETHOXAZOLE
     Route: 048
     Dates: start: 20211203, end: 20211207
  101. SULFAMETHOXAZOLE [Concomitant]
     Active Substance: SULFAMETHOXAZOLE
     Dates: start: 20211203, end: 20220107
  102. BUDESONIDE [Concomitant]
     Active Substance: BUDESONIDE
     Route: 055
     Dates: start: 20211230, end: 20220120
  103. BUDESONIDE [Concomitant]
     Active Substance: BUDESONIDE
     Route: 055
     Dates: start: 20220209, end: 20220224
  104. BUDESONIDE [Concomitant]
     Active Substance: BUDESONIDE
     Route: 055
     Dates: start: 20220321, end: 20220406
  105. BUDESONIDE [Concomitant]
     Active Substance: BUDESONIDE
     Route: 055
     Dates: start: 20220321, end: 20220501
  106. BUDESONIDE [Concomitant]
     Active Substance: BUDESONIDE
     Route: 055
     Dates: start: 20220501, end: 20220517
  107. BUDESONIDE [Concomitant]
     Active Substance: BUDESONIDE
     Route: 055
     Dates: start: 20211025, end: 20211110
  108. HUMAN IMMUNOGLOBULIN G [Concomitant]
     Active Substance: HUMAN IMMUNOGLOBULIN G
     Route: 042
     Dates: start: 20211231, end: 20220102
  109. OSELTAMIVIR [Concomitant]
     Active Substance: OSELTAMIVIR
     Route: 048
     Dates: start: 20211231, end: 20220107
  110. MONTELUKAST SODIUM [Concomitant]
     Active Substance: MONTELUKAST SODIUM
     Route: 048
     Dates: start: 20220108, end: 20220120
  111. MONTELUKAST SODIUM [Concomitant]
     Active Substance: MONTELUKAST SODIUM
     Route: 048
     Dates: start: 20220209, end: 20220228
  112. MONTELUKAST SODIUM [Concomitant]
     Active Substance: MONTELUKAST SODIUM
     Route: 048
     Dates: start: 20220321, end: 20220421
  113. MONTELUKAST SODIUM [Concomitant]
     Active Substance: MONTELUKAST SODIUM
     Route: 048
     Dates: start: 20220428, end: 20220517
  114. AMIKACIN SULFATE [Concomitant]
     Active Substance: AMIKACIN SULFATE
     Indication: Infection prophylaxis
     Route: 042
     Dates: start: 20220330, end: 20220406
  115. PIPERACILLIN SODIUM\SULBACTAM SODIUM [Concomitant]
     Active Substance: PIPERACILLIN SODIUM\SULBACTAM SODIUM
     Indication: Infection prophylaxis
     Route: 042
     Dates: start: 20220321, end: 20220402
  116. PIPERACILLIN SODIUM\SULBACTAM SODIUM [Concomitant]
     Active Substance: PIPERACILLIN SODIUM\SULBACTAM SODIUM
     Route: 042
     Dates: start: 20220428, end: 20220512
  117. COMPOUND CODEINE PHOSPHATE [CODEINE PHOSPHATE;EPHEDRINE HYDROCHLORIDE; [Concomitant]
     Route: 048
     Dates: start: 20211024, end: 20211101
  118. COMPOUND CODEINE PHOSPHATE [CODEINE PHOSPHATE;EPHEDRINE HYDROCHLORIDE; [Concomitant]
     Route: 048
     Dates: start: 20220112, end: 20220130
  119. COMPOUND CODEINE PHOSPHATE [CODEINE PHOSPHATE;EPHEDRINE HYDROCHLORIDE; [Concomitant]
     Route: 048
     Dates: start: 20220215, end: 20220216
  120. COMPOUND CODEINE PHOSPHATE [CODEINE PHOSPHATE;EPHEDRINE HYDROCHLORIDE; [Concomitant]
     Route: 048
     Dates: start: 20220223, end: 20220225
  121. COMPOUND CODEINE PHOSPHATE [CODEINE PHOSPHATE;EPHEDRINE HYDROCHLORIDE; [Concomitant]
     Dates: start: 20220322, end: 20220415
  122. COMPOUND CODEINE PHOSPHATE [CODEINE PHOSPHATE;EPHEDRINE HYDROCHLORIDE; [Concomitant]
     Dates: start: 20220428, end: 20220519

REACTIONS (2)
  - Immune-mediated lung disease [Not Recovered/Not Resolved]
  - Pneumonia bacterial [Fatal]

NARRATIVE: CASE EVENT DATE: 20210831
